FAERS Safety Report 5858916-5 (Version None)
Quarter: 2008Q3

REPORT INFORMATION
  Report Type: 
  Country: None (occurrence: None)
  Receive Date: 20080825
  Receipt Date: 20080819
  Transmission Date: 20090109
  Serious: No
  Sender: FDA-Public Use
  Company Number: US024412

PATIENT
  Sex: Female

DRUGS (5)
  1. FENTORA [Suspect]
     Indication: FIBROMYALGIA
     Dosage: BUCCAL
     Route: 002
  2. FENTORA [Suspect]
     Indication: RHEUMATOID ARTHRITIS
     Dosage: BUCCAL
     Route: 002
  3. FENTORA [Suspect]
     Indication: SYSTEMIC LUPUS ERYTHEMATOSUS
     Dosage: BUCCAL
     Route: 002
  4. NORCO [Concomitant]
  5. PERCOCET [Concomitant]

REACTIONS (1)
  - DRUG PRESCRIBING ERROR [None]
